FAERS Safety Report 9423973 (Version 2)
Quarter: 2014Q1

REPORT INFORMATION
  Report Type: Spontaneous
  Country: BR (occurrence: BR)
  Receive Date: 20130729
  Receipt Date: 20140326
  Transmission Date: 20141002
  Serious: Yes (Other)
  Sender: FDA-Public Use
  Company Number: BR-AMGEN-BRASP2012042470

PATIENT
  Age: 72 Year
  Sex: Male
  Weight: 92 kg

DRUGS (8)
  1. ENBREL [Suspect]
     Indication: RHEUMATOID ARTHRITIS
     Dosage: 50 MG, WEEKLY
     Route: 058
     Dates: start: 201205
  2. AMLODIPINE [Concomitant]
     Indication: RHEUMATOID ARTHRITIS
     Dosage: UNK
  3. LOSARTAN [Concomitant]
     Dosage: UNK
  4. FINASTERIDE [Concomitant]
     Dosage: UNK
  5. FOLIC ACID [Concomitant]
     Indication: ANAEMIA
     Dosage: UNK
     Dates: start: 2010
  6. METREXATO [Concomitant]
     Dosage: 8 TABLETS (UNSPECIFIED DOSE), ONCE WEEKLY
     Dates: start: 2010
  7. METREXATO [Concomitant]
     Dosage: 10 TABLETS STRENGTH 2.5MG (25 MG), 1X/WEEK
     Dates: start: 201306
  8. ENALAPRIL [Concomitant]
     Dosage: 1 TABLET (UNSPECIFIED DOSE), 2X/DAY

REACTIONS (4)
  - Cardiac disorder [Unknown]
  - Cardiomegaly [Unknown]
  - Platelet count decreased [Not Recovered/Not Resolved]
  - Urinary tract infection [Not Recovered/Not Resolved]
